FAERS Safety Report 24560848 (Version 4)
Quarter: 2025Q4

REPORT INFORMATION
  Report Type: Report from Study
  Country: US (occurrence: US)
  Receive Date: 20241029
  Receipt Date: 20251226
  Transmission Date: 20260118
  Serious: Yes (Other)
  Sender: PFIZER
  Company Number: US-PFIZER INC-2021229452

PATIENT
  Age: 79 Year
  Sex: Female

DRUGS (6)
  1. IBRANCE [Suspect]
     Active Substance: PALBOCICLIB
     Indication: Breast cancer female
     Dosage: 125 MG, DAY 1-21 EVERY 28 DAYS
     Route: 048
     Dates: start: 20180302
  2. IBRANCE [Suspect]
     Active Substance: PALBOCICLIB
     Dosage: 100 MG, DAILY 1-21 EVERY 28 DAYS
     Route: 048
     Dates: start: 20220301, end: 20230502
  3. IBRANCE [Suspect]
     Active Substance: PALBOCICLIB
     Dosage: 75 MG, ONE TABLET DAILY ON DAYS 1-21 EVERY 28 DAYS
     Route: 048
     Dates: start: 20230530
  4. IBRANCE [Suspect]
     Active Substance: PALBOCICLIB
     Dosage: 125 MG, TAKE ONE TABLET FROM DAYS 1-21 EVERY 28 DAYS
  5. IBRANCE [Suspect]
     Active Substance: PALBOCICLIB
     Dosage: TAKE 75 MG BY MOUTH DAILY. TAKE ONE TABLET DAILY ON DAY 1 TO 21 EVERY 28 DAYS.
     Route: 048
     Dates: start: 20251111
  6. FASLODEX [Concomitant]
     Active Substance: FULVESTRANT
     Dosage: UNK

REACTIONS (7)
  - Cytopenia [Unknown]
  - Chronic kidney disease [Unknown]
  - Second primary malignancy [Unknown]
  - Skin cancer [Unknown]
  - Anaemia [Unknown]
  - Skin lesion [Unknown]
  - Product dose omission issue [Unknown]

NARRATIVE: CASE EVENT DATE: 20220301
